FAERS Safety Report 9914843 (Version 4)
Quarter: 2015Q2

REPORT INFORMATION
  Report Type: Spontaneous
  Country: FR (occurrence: FR)
  Receive Date: 20140220
  Receipt Date: 20150522
  Transmission Date: 20150821
  Serious: Yes (Disabling, Other)
  Sender: FDA-Public Use
  Company Number: FR-BAUSCH-BL-2014-000998

PATIENT
  Age: 53 Year
  Sex: Female
  Weight: 70 kg

DRUGS (3)
  1. TOBREX [Suspect]
     Active Substance: TOBRAMYCIN
     Indication: ULCERATIVE KERATITIS
  2. EURONAC [Suspect]
     Active Substance: ACETYLCYSTEINE
     Indication: ULCERATIVE KERATITIS
  3. CARTEOL LP 2% COLLYRE A LIBERATION PROLONGEE EN RECIPIENT UNIDOSE [Suspect]
     Active Substance: CARTEOLOL HYDROCHLORIDE
     Indication: GLAUCOMA
     Route: 047
     Dates: start: 201002, end: 201103

REACTIONS (8)
  - Systemic lupus erythematosus [Unknown]
  - Hair texture abnormal [Unknown]
  - Hyperhidrosis [Unknown]
  - Muscular weakness [Not Recovered/Not Resolved]
  - Cardiac disorder [Unknown]
  - Ulcerative keratitis [Unknown]
  - Erythema [Unknown]
  - Alopecia [Recovering/Resolving]

NARRATIVE: CASE EVENT DATE: 2010
